FAERS Safety Report 23029281 (Version 2)
Quarter: 2023Q4

REPORT INFORMATION
  Report Type: Report from Study
  Country: SE (occurrence: SE)
  Receive Date: 20231004
  Receipt Date: 20231017
  Transmission Date: 20240110
  Serious: Yes (Hospitalization)
  Sender: FDA-Public Use
  Company Number: SE-GENMAB-2022-00830

PATIENT
  Age: 70 Year
  Sex: Male
  Weight: 74.6 kg

DRUGS (24)
  1. EPCORITAMAB [Suspect]
     Active Substance: EPCORITAMAB
     Indication: Follicular lymphoma stage IV
     Dosage: C1D1
     Route: 058
     Dates: start: 20220622, end: 20220622
  2. EPCORITAMAB [Suspect]
     Active Substance: EPCORITAMAB
     Dosage: C1D8
     Route: 058
     Dates: start: 20220629, end: 20220629
  3. EPCORITAMAB [Suspect]
     Active Substance: EPCORITAMAB
     Dosage: C1D15 - C2D8
     Route: 058
     Dates: start: 20220706, end: 20220720
  4. EPCORITAMAB [Suspect]
     Active Substance: EPCORITAMAB
     Dosage: C2D8 - C2D15
     Route: 058
     Dates: start: 20220817, end: 20220824
  5. EPCORITAMAB [Suspect]
     Active Substance: EPCORITAMAB
     Dosage: C2D15
     Route: 058
     Dates: start: 20220824, end: 20220824
  6. LENALIDOMIDE [Suspect]
     Active Substance: LENALIDOMIDE
     Indication: Follicular lymphoma stage IV
     Dosage: CYCLE 1 ARM 2B
     Route: 048
     Dates: start: 20220622, end: 20220712
  7. LENALIDOMIDE [Suspect]
     Active Substance: LENALIDOMIDE
     Dosage: CYCLE 2 ARM 2B
     Route: 048
     Dates: start: 20220720, end: 20220729
  8. RITUXIMAB [Suspect]
     Active Substance: RITUXIMAB
     Indication: Follicular lymphoma stage IV
     Dosage: C1D1
     Route: 042
     Dates: start: 20220622, end: 20220622
  9. RITUXIMAB [Suspect]
     Active Substance: RITUXIMAB
     Dosage: C1D8 - C2D1
     Route: 058
     Dates: start: 20220629, end: 20220713
  10. CETIRIZINE HYDROCHLORIDE [Concomitant]
     Active Substance: CETIRIZINE HYDROCHLORIDE
     Indication: Premedication
     Dosage: 10 MILLIGRAM, SINGLE
     Route: 048
     Dates: start: 20220720, end: 20220720
  11. ACETAMINOPHEN [Concomitant]
     Active Substance: ACETAMINOPHEN
     Indication: Premedication
     Dosage: 1 GRAM, SINGLE
     Route: 048
     Dates: start: 20220720, end: 20220720
  12. PREDNISONE [Concomitant]
     Active Substance: PREDNISONE
     Indication: Prophylaxis
     Dosage: 100 MILLIGRAM, QD
     Route: 048
     Dates: start: 20220817, end: 20220820
  13. ASPIRIN [Concomitant]
     Active Substance: ASPIRIN
     Indication: Prophylaxis
     Dosage: 75 MILLIGRAM, QD
     Route: 048
     Dates: start: 20210621
  14. ACYCLOVIR [Concomitant]
     Active Substance: ACYCLOVIR
     Indication: Prophylaxis
     Dosage: 400 MILLIGRAM, QD
     Route: 048
     Dates: start: 20190903
  15. BETAMETASON [BETAMETHASONE] [Concomitant]
     Indication: Prophylaxis
     Dosage: 4 MILLIGRAM, PRN
     Route: 048
     Dates: start: 20220720, end: 20220720
  16. COCILLANA [ETHYLMORPHINE HYDROCHLORIDE] [Concomitant]
     Indication: Cough
     Dosage: 10 MILLILITER, TID
     Route: 048
     Dates: start: 20220729
  17. CYSTEIN [Concomitant]
     Indication: Secretion discharge
     Dosage: 200 MILLIGRAM, TID
     Route: 048
     Dates: start: 20220803, end: 20220928
  18. DOXYCYCLINE [Concomitant]
     Active Substance: DOXYCYCLINE
     Indication: Pyrexia
     Dosage: 100 MILLIGRAM, QD
     Route: 048
     Dates: start: 20220629, end: 20220708
  19. DOXYCYCLINE [Concomitant]
     Active Substance: DOXYCYCLINE
     Indication: Upper respiratory tract infection
     Dosage: 100 MILLIGRAM, QD
     Route: 048
     Dates: start: 20220711, end: 20220712
  20. DOXYCYCLINE [Concomitant]
     Active Substance: DOXYCYCLINE
     Indication: Haemophilus infection
     Dosage: 100 MILLIGRAM, BID
     Route: 048
     Dates: start: 20220713, end: 20220720
  21. KALIUMKLORID [Concomitant]
     Indication: Hypercalcaemia
     Dosage: 1500 MILLIGRAM, QD
     Route: 048
     Dates: start: 20220720, end: 20220817
  22. KLORAMFENIKOL [CHLORAMPHENICOL] [Concomitant]
     Indication: Eye disorder
     Dosage: 6 DROP, Q3H, TOPICAL
     Route: 047
     Dates: start: 20220727, end: 20220928
  23. MAGNESIUM HYDROXIDE [Concomitant]
     Active Substance: MAGNESIUM HYDROXIDE
     Indication: Muscle spasms
     Dosage: 250 MILLIGRAM, QD
     Route: 048
     Dates: start: 20220713, end: 20220817
  24. SULFAMETHOXAZOLE\TRIMETHOPRIM [Concomitant]
     Active Substance: SULFAMETHOXAZOLE\TRIMETHOPRIM
     Indication: Prophylaxis
     Dosage: DOSE : 400-80 MG
     Route: 048
     Dates: start: 20220711

REACTIONS (1)
  - Haemophilus infection [Recovered/Resolved]

NARRATIVE: CASE EVENT DATE: 20220727
